FAERS Safety Report 16119124 (Version 3)
Quarter: 2019Q2

REPORT INFORMATION
  Report Type: Report from Study
  Country: KR (occurrence: KR)
  Receive Date: 20190326
  Receipt Date: 20190610
  Transmission Date: 20190711
  Serious: Yes (Other)
  Sender: FDA-Public Use
  Company Number: KR-SA-2019SA075156

PATIENT
  Age: 48 Year
  Sex: Female

DRUGS (5)
  1. INSULIN GLARGINE [Suspect]
     Active Substance: INSULIN GLARGINE
     Indication: DIABETES MELLITUS
     Dosage: 46 U, QD
     Route: 058
     Dates: start: 2019
  2. INSULIN GLARGINE [Suspect]
     Active Substance: INSULIN GLARGINE
     Dosage: 44 U, QD
     Route: 058
     Dates: start: 201902, end: 2019
  3. APIDRA [Suspect]
     Active Substance: INSULIN GLULISINE
     Indication: DIABETES MELLITUS
     Dosage: 14-10-10 U, TID
     Route: 058
     Dates: start: 2019
  4. APIDRA [Suspect]
     Active Substance: INSULIN GLULISINE
     Dosage: 14-14-14 UNITS.
     Dates: start: 2019
  5. APIDRA [Suspect]
     Active Substance: INSULIN GLULISINE
     Dosage: 14-8-6 UNITS, TID
     Route: 058
     Dates: start: 201902, end: 2019

REACTIONS (2)
  - Visual impairment [Not Recovered/Not Resolved]
  - Cataract [Recovering/Resolving]

NARRATIVE: CASE EVENT DATE: 20190318
